FAERS Safety Report 8626928 (Version 2)
Quarter: 2014Q1

REPORT INFORMATION
  Report Type: Spontaneous
  Country: US (occurrence: None)
  Receive Date: 20120323
  Receipt Date: 20130305
  Transmission Date: 20141002
  Serious: Yes (Other)
  Sender: FDA-Public Use
  Company Number: 163-21880-11083556

PATIENT
  Age: 79 Year
  Sex: Female
  Weight: 67.59 kg

DRUGS (8)
  1. REVLIMID [Suspect]
     Indication: MYELODYSPLASTIC SYNDROME
     Route: 048
     Dates: start: 20110207
  2. EXJADE [Concomitant]
  3. IMODIUM [Concomitant]
  4. METOPROLOL [Concomitant]
  5. PLAVIX [Concomitant]
  6. LOVASTATIN [Concomitant]
  7. FOLIC ACID [Concomitant]
  8. PL TYLENOL (PARACETAMOL) [Concomitant]

REACTIONS (7)
  - Blood count abnormal [None]
  - Pyrexia [None]
  - Chills [None]
  - Night sweats [None]
  - Diarrhoea [None]
  - Kidney infection [None]
  - Constipation [None]
